FAERS Safety Report 10066516 (Version 1)
Quarter: 2014Q2

REPORT INFORMATION
  Report Type: Spontaneous
  Country: US (occurrence: None)
  Receive Date: 20140401
  Receipt Date: 20140401
  Transmission Date: 20141212
  Serious: Yes (Hospitalization)
  Sender: FDA-Public Use
  Company Number: PHEH2013US007462

PATIENT
  Age: 68 Year
  Sex: Female

DRUGS (4)
  1. EXELON PATCH (RIVASTIGMINE) TRANS-THERAPEUTIC-SYSTEM [Suspect]
     Indication: DEMENTIA ALZHEIMER^S TYPE
     Route: 062
     Dates: start: 20130315
  2. NAMENDA [Concomitant]
  3. ARICEPT [Concomitant]
  4. LEXAPRO [Concomitant]

REACTIONS (3)
  - Dyspnoea [None]
  - Asthenia [None]
  - Convulsion [None]
